FAERS Safety Report 5252846-8 (Version None)
Quarter: 2007Q1

REPORT INFORMATION
  Report Type: 
  Country: None (occurrence: None)
  Receive Date: 20070227
  Receipt Date: 20070213
  Transmission Date: 20070707
  Serious: Yes (Other)
  Sender: FDA-Public Use
  Company Number: GXKR2007GB01681

PATIENT
  Age: 72 Year
  Sex: Female
  Weight: 68 kg

DRUGS (6)
  1. FOLIC ACID [Suspect]
     Dosage: 5 MG, BIW, ORAL
     Route: 048
  2. OMEPRAZOLE [Suspect]
     Dosage: 20 MG, UNK, ORAL
     Route: 048
  3. CELECOXIB (CELECOXIB) [Suspect]
     Dosage: 200 MG, UNK, ORAL
     Route: 048
  4. FOSAMAX [Suspect]
     Dosage: 70 MG, QW, ORAL
     Route: 048
  5. INFLIXIMAB (INFLIXIMAB) [Suspect]
     Dosage: 200 MG, UNK, INTRAVENOUS
     Route: 042
     Dates: start: 20060420, end: 20060928
  6. METHOTREXATE [Suspect]
     Dosage: 10 MG, QW, ORAL
     Route: 048

REACTIONS (2)
  - CEREBRAL INFARCTION [None]
  - SYNCOPE [None]
